FAERS Safety Report 10944536 (Version 3)
Quarter: 2015Q4

REPORT INFORMATION
  Report Type: Spontaneous
  Country: JP (occurrence: JP)
  Receive Date: 20150323
  Receipt Date: 20151020
  Transmission Date: 20160304
  Serious: Yes (Hospitalization, Other)
  Sender: FDA-Public Use
  Company Number: JP-ORION CORPORATION ORION PHARMA-ENT 2015-0063

PATIENT
  Age: 69 Year
  Sex: Female

DRUGS (6)
  1. AMANTADINE [Suspect]
     Active Substance: AMANTADINE
     Route: 048
  2. LEPRINTON [Concomitant]
     Route: 065
  3. NEUPRO [Concomitant]
     Active Substance: ROTIGOTINE
     Route: 065
  4. COMTAN [Suspect]
     Active Substance: ENTACAPONE
     Indication: PARKINSON^S DISEASE
     Route: 048
  5. BAKTAR [Concomitant]
     Active Substance: SULFAMETHOXAZOLE\TRIMETHOPRIM
     Route: 065
  6. AMANTADINE [Suspect]
     Active Substance: AMANTADINE
     Route: 048

REACTIONS (5)
  - Drug dose omission [Unknown]
  - Rhabdomyolysis [Recovering/Resolving]
  - Pneumonia [Recovering/Resolving]
  - Dysphonia [Recovering/Resolving]
  - Hepatic function abnormal [Recovering/Resolving]

NARRATIVE: CASE EVENT DATE: 20150223
